FAERS Safety Report 4530290-6 (Version None)
Quarter: 2004Q4

REPORT INFORMATION
  Report Type: 
  Country: None (occurrence: None)
  Receive Date: 20041216
  Receipt Date: 20041216
  Transmission Date: 20050328
  Serious: Yes (Disabling)
  Sender: FDA-Public Use
  Company Number: None

PATIENT
  Age: 49 Year
  Sex: Female
  Weight: 92.9874 kg

DRUGS (1)
  1. LEVAQUIN [Suspect]
     Indication: SINUSITIS
     Dosage: 1 TABLET   PER DAY   ORAL
     Route: 048
     Dates: start: 20030215, end: 20030221

REACTIONS (19)
  - ARTHRALGIA [None]
  - ASTHENIA [None]
  - BURNING SENSATION [None]
  - CONFUSIONAL STATE [None]
  - DIFFICULTY IN WALKING [None]
  - FATIGUE [None]
  - FORMICATION [None]
  - HYPOAESTHESIA [None]
  - INSOMNIA [None]
  - MULTIPLE SCLEROSIS [None]
  - MUSCLE CONTRACTIONS INVOLUNTARY [None]
  - MUSCLE SPASMS [None]
  - MUSCLE TWITCHING [None]
  - MUSCULAR WEAKNESS [None]
  - MYALGIA [None]
  - PARAESTHESIA [None]
  - TENDON DISORDER [None]
  - TENDONITIS [None]
  - THINKING ABNORMAL [None]
